FAERS Safety Report 15848200 (Version 1)
Quarter: 2019Q1

REPORT INFORMATION
  Report Type: Spontaneous
  Country: US (occurrence: US)
  Receive Date: 20190121
  Receipt Date: 20190121
  Transmission Date: 20190417
  Serious: No
  Sender: FDA-Public Use
  Company Number: US-PFIZER INC-2019027799

PATIENT
  Age: 61 Year
  Sex: Male

DRUGS (1)
  1. SUTENT [Suspect]
     Active Substance: SUNITINIB MALATE
     Indication: COLON CANCER
     Dosage: 50 MG, CYCLIC (TAKE 4 CAPSULES (50 MG) BY MOUTH DAILY FOR 4 WEEKS, FOLLOWED BY 2 WEEKS OFF)
     Route: 048
     Dates: start: 201812

REACTIONS (3)
  - Bone pain [Unknown]
  - Blood pressure increased [Unknown]
  - Dizziness [Unknown]
